APPROVED DRUG PRODUCT: NEBUPENT
Active Ingredient: PENTAMIDINE ISETHIONATE
Strength: 600MG/VIAL
Dosage Form/Route: FOR SOLUTION;INHALATION
Application: N019887 | Product #002
Applicant: FRESENIUS KABI USA LLC
Approved: Mar 22, 1996 | RLD: No | RS: No | Type: DISCN